FAERS Safety Report 21517895 (Version 1)
Quarter: 2022Q4

REPORT INFORMATION
  Report Type: Spontaneous
  Country: US (occurrence: US)
  Receive Date: 20221028
  Receipt Date: 20221028
  Transmission Date: 20230113
  Serious: No
  Sender: FDA-Public Use
  Company Number: US-GLAXOSMITHKLINE-USCH2022040287

PATIENT
  Age: 88 Year
  Sex: Female

DRUGS (1)
  1. VOLTAREN ARTHRITIS PAIN [Suspect]
     Active Substance: DICLOFENAC SODIUM
     Indication: Product used for unknown indication
     Dosage: UNK

REACTIONS (5)
  - Erythema [Unknown]
  - Ear discomfort [Unknown]
  - Pharyngeal erythema [Unknown]
  - Throat irritation [Unknown]
  - Product use issue [Unknown]
